FAERS Safety Report 8171072-6 (Version None)
Quarter: 2012Q1

REPORT INFORMATION
  Report Type: 
  Country: None (occurrence: None)
  Receive Date: 20120228
  Receipt Date: 20120222
  Transmission Date: 20120608
  Serious: Yes (Death, Hospitalization)
  Sender: FDA-Public Use
  Company Number: PHHY2012JP012893

PATIENT
  Age: 86 Year
  Sex: Female

DRUGS (3)
  1. PREDNISOLONE [Concomitant]
     Indication: MYASTHENIA GRAVIS
     Dosage: 17. MG, UNK
     Route: 048
  2. CYCLOSPORINE [Suspect]
     Indication: MYASTHENIA GRAVIS
     Dosage: 35 MG, UNK
  3. METHYLPREDNISOLONE [Concomitant]
     Dosage: 1000 MG, UNK

REACTIONS (4)
  - FUNGAL INFECTION [None]
  - ACUTE RESPIRATORY DISTRESS SYNDROME [None]
  - IMMUNOSUPPRESSANT DRUG LEVEL INCREASED [None]
  - DRUG INTERACTION [None]
